FAERS Safety Report 22212518 (Version 2)
Quarter: 2023Q2

REPORT INFORMATION
  Report Type: Report from Study
  Country: TH (occurrence: TH)
  Receive Date: 20230414
  Receipt Date: 20230425
  Transmission Date: 20230721
  Serious: Yes (Hospitalization, Other)
  Sender: FDA-Public Use
  Company Number: TH-009507513-2205THA005827

PATIENT
  Age: 55 Year
  Sex: Female

DRUGS (3)
  1. PEMBROLIZUMAB [Suspect]
     Active Substance: PEMBROLIZUMAB
     Indication: Triple negative breast cancer
     Dosage: 200 MG IV, EVERY 3 WEEKS, STRENGTH: 100MG
     Route: 042
     Dates: start: 20220411, end: 20220411
  2. PEMBROLIZUMAB [Suspect]
     Active Substance: PEMBROLIZUMAB
     Dosage: 200 MG IV, EVERY 3 WEEKS, STRENGTH: 100MG
     Route: 042
     Dates: start: 20220502, end: 20220502
  3. PEMBROLIZUMAB [Suspect]
     Active Substance: PEMBROLIZUMAB
     Dosage: 200 MG IV, EVERY 3 WEEKS, STRENGTH: 100MG
     Route: 042
     Dates: start: 20220516, end: 20220516

REACTIONS (8)
  - Sepsis [Recovered/Resolved]
  - Pneumonia [Recovered/Resolved]
  - Loss of consciousness [Recovered/Resolved]
  - Brain hypoxia [Unknown]
  - Gait disturbance [Recovering/Resolving]
  - White blood cell count decreased [Unknown]
  - Haematocrit decreased [Unknown]
  - Inappropriate schedule of product administration [Unknown]

NARRATIVE: CASE EVENT DATE: 20220101
